FAERS Safety Report 20914515 (Version 1)
Quarter: 2022Q2

REPORT INFORMATION
  Report Type: Spontaneous
  Country: US (occurrence: US)
  Receive Date: 20220604
  Receipt Date: 20220604
  Transmission Date: 20220720
  Serious: No
  Sender: FDA-Public Use
  Company Number: US-SA-SAC20220523000574

PATIENT
  Sex: Female

DRUGS (11)
  1. AUBAGIO [Suspect]
     Active Substance: TERIFLUNOMIDE
     Indication: Relapsing-remitting multiple sclerosis
     Dosage: FREQUENCY: NEVER FILLED
     Route: 065
  2. AMPYRA [Concomitant]
     Active Substance: DALFAMPRIDINE
  3. ASPIRIN [Concomitant]
     Active Substance: ASPIRIN
  4. ESTRIOL [Concomitant]
     Active Substance: ESTRIOL
  5. GABAPENTIN [Concomitant]
     Active Substance: GABAPENTIN
  6. METOPROLOL SUCCINATE [Concomitant]
     Active Substance: METOPROLOL SUCCINATE
  7. VITAMINS NOS [Concomitant]
     Active Substance: VITAMINS
     Dosage: DAILY
  8. SYNTHROID [Concomitant]
     Active Substance: LEVOTHYROXINE SODIUM
  9. VITAMIN D3 [Concomitant]
     Active Substance: CHOLECALCIFEROL
  10. ZOLOFT [Concomitant]
     Active Substance: SERTRALINE HYDROCHLORIDE
  11. COENZYME Q10 [Concomitant]
     Active Substance: DIETARY SUPPLEMENT\UBIDECARENONE

REACTIONS (14)
  - Dizziness [Unknown]
  - Condition aggravated [Unknown]
  - Hypoaesthesia [Unknown]
  - Tenderness [Unknown]
  - Tremor [Unknown]
  - Depression [Unknown]
  - Walking aid user [Unknown]
  - Gait disturbance [Unknown]
  - Balance disorder [Unknown]
  - Feeling abnormal [Unknown]
  - Psychiatric symptom [Unknown]
  - Myalgia [Unknown]
  - Paraesthesia [Unknown]
  - Product dose omission in error [Unknown]

NARRATIVE: CASE EVENT DATE: 20220101
